FAERS Safety Report 7751523-9 (Version None)
Quarter: 2011Q3

REPORT INFORMATION
  Report Type: 
  Country: None (occurrence: None)
  Receive Date: 20110914
  Receipt Date: 20110908
  Transmission Date: 20111222
  Serious: Yes (Hospitalization, Other)
  Sender: FDA-Public Use
  Company Number: PHHY2011VE79491

PATIENT
  Sex: Female

DRUGS (5)
  1. EXELON [Concomitant]
     Dosage: UNK UKN, UNK
     Route: 062
     Dates: start: 20110906
  2. ZOLEDRONOC ACID [Suspect]
     Indication: OSTEOPOROSIS
     Dosage: 5 MG ONCE A YEAR
     Route: 042
     Dates: start: 20090101
  3. RISPERIN [Concomitant]
     Dosage: 2 DRP, UNK
  4. MEMANTINE HYDROCHLORIDE [Concomitant]
     Dosage: TWICE A DAY
  5. EZENTIUS [Concomitant]
     Dosage: 10 MG, UNK

REACTIONS (2)
  - SENILE DEMENTIA [None]
  - DEPRESSION [None]
